FAERS Safety Report 8153770-3 (Version None)
Quarter: 2012Q1

REPORT INFORMATION
  Report Type: 
  Country: None (occurrence: None)
  Receive Date: 20120221
  Receipt Date: 20120216
  Transmission Date: 20120608
  Serious: Yes (Other)
  Sender: FDA-Public Use
  Company Number: US-GLAXOSMITHKLINE-A0966217A

PATIENT
  Age: 15 Year
  Sex: Female

DRUGS (2)
  1. NO CONCURRENT MEDICATION [Concomitant]
  2. LAMOTRIGINE [Suspect]
     Indication: EPILEPSY
     Dosage: 150MG TWICE PER DAY
     Route: 048
     Dates: start: 20080201, end: 20080601

REACTIONS (5)
  - FALL [None]
  - DRUG INEFFECTIVE [None]
  - CONVULSION [None]
  - SCAR [None]
  - BURNS THIRD DEGREE [None]
